FAERS Safety Report 18255072 (Version 2)
Quarter: 2020Q4

REPORT INFORMATION
  Report Type: Spontaneous
  Country: US (occurrence: US)
  Receive Date: 20200911
  Receipt Date: 20201016
  Transmission Date: 20210113
  Serious: Yes (Other)
  Sender: FDA-Public Use
  Company Number: US-LUPIN PHARMACEUTICALS INC.-2020-05715

PATIENT
  Age: 80 Year
  Sex: Female
  Weight: 59 kg

DRUGS (9)
  1. LEVOTHYROXINE. [Concomitant]
     Active Substance: LEVOTHYROXINE
     Indication: THYROID DISORDER
     Dosage: 75 MCG, QD
     Route: 048
  2. LISINOPRIL TABLETS USP, 2.5MG [Suspect]
     Active Substance: LISINOPRIL
     Indication: BLOOD PRESSURE SYSTOLIC INCREASED
     Dosage: 2.5 MILLIGRAM, QD
     Route: 048
     Dates: start: 20200624
  3. LATANOPROST. [Concomitant]
     Active Substance: LATANOPROST
     Indication: OCULAR HYPERTENSION
     Dosage: ONE DROP IN BOTH EYES, ONE DROP IN BOTH EYES AT BEDTIME DAILY
  4. BRIMONIDINE [Concomitant]
     Active Substance: BRIMONIDINE TARTRATE
     Indication: OCULAR DISCOMFORT
     Dosage: 1 DROP, BID, ONE DROP IN BOTH EYES, TWICE DAILY
  5. LISINOPRIL TABLETS USP, 2.5MG [Suspect]
     Active Substance: LISINOPRIL
     Dosage: 2.5 MILLIGRAM, BID
     Route: 048
     Dates: start: 20200828
  6. CARVEDILOL. [Suspect]
     Active Substance: CARVEDILOL
     Indication: HYPERTENSION
     Dosage: 12.5 MILLIGRAM, QD
     Route: 065
     Dates: start: 20200624
  7. CARVEDILOL. [Suspect]
     Active Substance: CARVEDILOL
     Dosage: 12.5 MILLIGRAM, BID
     Route: 065
     Dates: start: 20200828
  8. FLOVENT HFA [Concomitant]
     Active Substance: FLUTICASONE PROPIONATE
     Indication: PRODUCT USED FOR UNKNOWN INDICATION
     Dosage: 110 MCG, 2 PUFFS DAILY
     Route: 055
  9. MONTELUKAST SODIUM. [Concomitant]
     Active Substance: MONTELUKAST SODIUM
     Indication: PRODUCT USED FOR UNKNOWN INDICATION
     Dosage: 10 MICROGRAM, QD, 1 EVERY DAY AT BEDTIME FOR 3 DAYS, THEN 5MG ON THE 4TH DAY AT BEDTIME ON A REPEATI
     Route: 048

REACTIONS (2)
  - Drug ineffective [Unknown]
  - Blood pressure systolic increased [Recovering/Resolving]

NARRATIVE: CASE EVENT DATE: 2020
